FAERS Safety Report 5889630-8 (Version None)
Quarter: 2008Q3

REPORT INFORMATION
  Report Type: 
  Country: None (occurrence: None)
  Receive Date: 20080919
  Receipt Date: 20080911
  Transmission Date: 20090109
  Serious: Yes (Other)
  Sender: FDA-Public Use
  Company Number: B0537002A

PATIENT
  Sex: Female

DRUGS (2)
  1. LAMICTAL [Suspect]
     Indication: EPILEPSY
     Dosage: 5MG PER DAY
     Route: 048
     Dates: start: 20080101, end: 20080101
  2. VALPROATE SODIUM + VALPROIC ACID [Suspect]
     Indication: EPILEPSY
     Route: 048
     Dates: end: 20080101

REACTIONS (4)
  - BLOOD FIBRINOGEN DECREASED [None]
  - COAGULATION FACTOR DECREASED [None]
  - DISSEMINATED INTRAVASCULAR COAGULATION [None]
  - PROTHROMBIN LEVEL DECREASED [None]
